FAERS Safety Report 7777588-6 (Version None)
Quarter: 2011Q3

REPORT INFORMATION
  Report Type: 
  Country: None (occurrence: None)
  Receive Date: 20110926
  Receipt Date: 20110916
  Transmission Date: 20111222
  Serious: Yes (Hospitalization)
  Sender: FDA-Public Use
  Company Number: JP-TEVA-302168ISR

PATIENT
  Sex: Female
  Weight: 54.5 kg

DRUGS (2)
  1. CISPLATIN [Suspect]
     Indication: NON-SMALL CELL LUNG CANCER
     Dosage: 114MG(75 MG/M2),EVERY 3 WEEKS
     Route: 042
     Dates: start: 20110706
  2. PEMETREXED [Suspect]
     Indication: NON-SMALL CELL LUNG CANCER
     Dosage: 760 MG(500 MG/M2),EVERY 3 WEEKS
     Route: 042
     Dates: start: 20110706

REACTIONS (1)
  - SYNCOPE [None]
